FAERS Safety Report 6168556-9 (Version None)
Quarter: 2009Q2

REPORT INFORMATION
  Report Type: 
  Country: None (occurrence: None)
  Receive Date: 20090427
  Receipt Date: 20090422
  Transmission Date: 20091009
  Serious: Yes (Life-Threatening)
  Sender: FDA-Public Use
  Company Number: FR-ASTRAZENECA-2009CG00810

PATIENT
  Age: 19681 Day
  Sex: Male

DRUGS (6)
  1. XYLOCAINE [Suspect]
     Indication: LOCAL ANAESTHESIA
     Route: 049
     Dates: start: 20090127, end: 20090127
  2. DIPRIVAN [Suspect]
     Indication: GENERAL ANAESTHESIA
     Route: 042
     Dates: start: 20090127, end: 20090127
  3. ULTIVA [Suspect]
     Indication: GENERAL ANAESTHESIA
     Route: 042
     Dates: start: 20090127, end: 20090127
  4. AUGMENTIN '125' [Suspect]
     Indication: PROPHYLAXIS
     Route: 042
     Dates: start: 20090127, end: 20090127
  5. ZANIDIP [Concomitant]
     Indication: HYPERTENSION
  6. METHYLPREDNISOLONE MERCK [Concomitant]
     Dates: start: 20090127, end: 20090127

REACTIONS (5)
  - CIRCULATORY COLLAPSE [None]
  - MUSCLE SPASTICITY [None]
  - PCO2 DECREASED [None]
  - RASH [None]
  - SHOCK [None]
